FAERS Safety Report 7404107-6 (Version None)
Quarter: 2011Q2

REPORT INFORMATION
  Report Type: 
  Country: None (occurrence: None)
  Receive Date: 20110408
  Receipt Date: 20110325
  Transmission Date: 20111010
  Serious: Yes (Hospitalization)
  Sender: FDA-Public Use
  Company Number: US-CELGENEUS-163-21880-11012039

PATIENT
  Sex: Female
  Weight: 77.18 kg

DRUGS (18)
  1. LASIX [Concomitant]
     Route: 065
  2. ASPIRIN [Concomitant]
     Dosage: 81 MILLIGRAM
     Route: 048
  3. DEXAMETHASONE [Concomitant]
     Indication: MULTIPLE MYELOMA
     Dosage: 4 MILLIGRAM
     Route: 048
  4. REVLIMID [Suspect]
     Indication: MULTIPLE MYELOMA
     Dosage: 25 MILLIGRAM
     Route: 048
     Dates: start: 20101210
  5. MANNITOL [Concomitant]
     Route: 065
  6. FLUID [Concomitant]
     Route: 051
  7. COMBIGAN [Concomitant]
     Route: 065
  8. ALLOPURINOL [Concomitant]
     Dosage: 100 MILLIGRAM
     Route: 048
  9. ASPIRIN [Concomitant]
     Route: 065
  10. LISINOPRIL [Concomitant]
     Dosage: 2.5 MILLIGRAM
     Route: 048
  11. COUMADIN [Concomitant]
     Dosage: 2.5 MILLIGRAM
     Route: 048
  12. LEVOXYL [Concomitant]
     Route: 048
  13. METFORMIN [Concomitant]
     Route: 048
  14. VELCADE [Concomitant]
     Route: 065
     Dates: start: 20110301
  15. CALCIUM [Concomitant]
     Dosage: 600MG-125
     Route: 048
  16. POTASSIUM [Concomitant]
     Dosage: 99 MILLIGRAM
     Route: 048
  17. MEVACOR [Concomitant]
     Dosage: 20 MILLIGRAM
     Route: 048
  18. NORVASC [Concomitant]
     Dosage: 10 MILLIGRAM
     Route: 048

REACTIONS (5)
  - TUBULOINTERSTITIAL NEPHRITIS [None]
  - LIMB DISCOMFORT [None]
  - HAEMOLYSIS [None]
  - WEIGHT DECREASED [None]
  - HAEMOGLOBIN DECREASED [None]
